FAERS Safety Report 4496337-0 (Version None)
Quarter: 2004Q4

REPORT INFORMATION
  Report Type: 
  Country: None (occurrence: None)
  Receive Date: 20041109
  Receipt Date: 20041029
  Transmission Date: 20050328
  Serious: Yes (Hospitalization, Other)
  Sender: FDA-Public Use
  Company Number: US-ABBOTT-04P-163-0279405-00

PATIENT
  Sex: Female
  Weight: 56.296 kg

DRUGS (8)
  1. HUMIRA [Suspect]
     Indication: RHEUMATOID ARTHRITIS
     Route: 058
     Dates: start: 20030301, end: 20041006
  2. METHOTREXATE SODIUM [Concomitant]
     Indication: RHEUMATOID ARTHRITIS
     Route: 050
     Dates: start: 19950101
  3. AVISTA [Concomitant]
     Indication: RHEUMATOID ARTHRITIS
  4. CALCIUM [Concomitant]
     Indication: RHEUMATOID ARTHRITIS
     Route: 048
  5. PANCRELIPASE [Concomitant]
     Indication: PANCREATITIS ACUTE
     Route: 048
  6. ACETYLSALICYLIC ACID [Concomitant]
     Indication: DRUG USE FOR UNKNOWN INDICATION
  7. CEPHALEXIN [Concomitant]
     Indication: BRONCHITIS
     Dates: start: 20040901
  8. PREDNISONE [Concomitant]
     Indication: RHEUMATOID ARTHRITIS
     Route: 048

REACTIONS (5)
  - BRONCHITIS [None]
  - CONDITION AGGRAVATED [None]
  - HYPOAESTHESIA [None]
  - LUNG NEOPLASM [None]
  - MYOCARDIAL INFARCTION [None]
